FAERS Safety Report 6724739 (Version 2)
Quarter: 2020Q3

REPORT INFORMATION
  Report Type: Report from Study
  Country: US (occurrence: US)
  Receive Date: 20080812
  Receipt Date: 20080905
  Transmission Date: 20201105
  Serious: Yes (Other)
  Sender: FDA-Public Use
  Company Number: US-ROCHE-578615

PATIENT
  Sex: Female

DRUGS (2)
  1. PREVACID [Concomitant]
     Active Substance: LANSOPRAZOLE
     Indication: OESOPHAGEAL DISORDER
  2. IBANDRONIC ACID. [Suspect]
     Active Substance: IBANDRONIC ACID
     Indication: OSTEOPOROSIS
     Dosage: FORM: PILL
     Route: 065

REACTIONS (1)
  - Haemorrhage [Recovered/Resolved]
